FAERS Safety Report 15172086 (Version 2)
Quarter: 2018Q3

REPORT INFORMATION
  Report Type: Spontaneous
  Country: US (occurrence: US)
  Receive Date: 20180720
  Receipt Date: 20180731
  Transmission Date: 20181010
  Serious: Yes (Hospitalization, Other)
  Sender: FDA-Public Use
  Company Number: US-ACORDA-ACO_152149_2018

PATIENT
  Age: 31 Year
  Sex: Female

DRUGS (7)
  1. TECFIDERA [Suspect]
     Active Substance: DIMETHYL FUMARATE
     Indication: PRODUCT USED FOR UNKNOWN INDICATION
     Dosage: UNK
     Route: 065
     Dates: start: 2015, end: 2017
  2. AMPYRA [Suspect]
     Active Substance: DALFAMPRIDINE
     Indication: MULTIPLE SCLEROSIS
     Dosage: 10 MG, BID
     Route: 048
     Dates: end: 201604
  3. AMPYRA [Suspect]
     Active Substance: DALFAMPRIDINE
     Indication: GAIT DISTURBANCE
     Dosage: 10 MG, BID
     Route: 048
  4. AVONEX [Suspect]
     Active Substance: INTERFERON BETA-1A
     Indication: MULTIPLE SCLEROSIS
     Dosage: 30 MCG, WEEKLY
     Route: 030
  5. COPAXONE [Suspect]
     Active Substance: GLATIRAMER ACETATE
     Indication: PRODUCT USED FOR UNKNOWN INDICATION
     Dosage: UNK
     Route: 065
  6. TYSABRI [Suspect]
     Active Substance: NATALIZUMAB
     Indication: PRODUCT USED FOR UNKNOWN INDICATION
     Dosage: UNK
     Route: 065
  7. EXCEDRIN [Suspect]
     Active Substance: ACETAMINOPHEN\ASPIRIN\CAFFEINE
     Indication: PRODUCT USED FOR UNKNOWN INDICATION
     Dosage: UNK
     Route: 065

REACTIONS (23)
  - Hidradenitis [Unknown]
  - Staphylococcal infection [Unknown]
  - Multiple sclerosis relapse [Recovered/Resolved]
  - Renal cyst [Unknown]
  - Renal neoplasm [Unknown]
  - Pollakiuria [Unknown]
  - Visual field defect [Unknown]
  - Chest pain [Unknown]
  - Pruritus [Unknown]
  - Ovarian cyst [Unknown]
  - Erythema [Unknown]
  - Drug hypersensitivity [Unknown]
  - Immunosuppression [Unknown]
  - Micturition urgency [Unknown]
  - Influenza like illness [Unknown]
  - Limb injury [Unknown]
  - Acute kidney injury [Unknown]
  - Condition aggravated [Unknown]
  - Skin burning sensation [Unknown]
  - Cellulitis [Unknown]
  - Peripheral swelling [Unknown]
  - Acne [Unknown]
  - Therapy cessation [Unknown]

NARRATIVE: CASE EVENT DATE: 2014
